FAERS Safety Report 4368201-9 (Version None)
Quarter: 2004Q2

REPORT INFORMATION
  Report Type: 
  Country: None (occurrence: None)
  Receive Date: 20040527
  Receipt Date: 20040520
  Transmission Date: 20050107
  Serious: Yes (Death, Hospitalization)
  Sender: FDA-Public Use
  Company Number: HQWYE780910MAY04

PATIENT
  Age: 67 Year
  Sex: Male

DRUGS (15)
  1. RHEUMATREX [Suspect]
     Indication: RHEUMATOID ARTHRITIS
     Dosage: SEE IMAGE
     Route: 048
     Dates: start: 19990801, end: 20021001
  2. RHEUMATREX [Suspect]
     Indication: RHEUMATOID ARTHRITIS
     Dosage: SEE IMAGE
     Route: 048
     Dates: start: 20021023, end: 20031022
  3. RHEUMATREX [Suspect]
     Indication: RHEUMATOID ARTHRITIS
     Dosage: SEE IMAGE
     Route: 048
     Dates: start: 20031023, end: 20031119
  4. RHEUMATREX [Suspect]
     Indication: RHEUMATOID ARTHRITIS
     Dosage: SEE IMAGE
     Route: 048
     Dates: start: 20031120, end: 20041212
  5. ETODOLAC [Suspect]
     Indication: RHEUMATOID ARTHRITIS
     Dosage: 400 MG 1X PER 1 DAY ORAL
     Route: 048
     Dates: start: 20031203, end: 20040216
  6. MEDROL [Suspect]
     Indication: RHEUMATOID ARTHRITIS
     Dosage: 6 MG 1X PER 1 DAY INTRAVENOUS
     Route: 042
     Dates: start: 20031203, end: 20040213
  7. METHOTREXATE [Suspect]
     Indication: RHEUMATOID ARTHRITIS
     Dosage: 2.5-5.0 MG WEEKLY ORAL
     Route: 048
     Dates: start: 19970804, end: 19990801
  8. REMICADE [Suspect]
     Indication: RHEUMATOID ARTHRITIS
     Dosage: 3 MG/KG/DAY INTRAVENOUS
     Route: 042
     Dates: start: 20031204, end: 20031204
  9. REMICADE [Suspect]
     Indication: RHEUMATOID ARTHRITIS
     Dosage: 3 MG/KG/DAY INTRAVENOUS
     Route: 042
     Dates: start: 20031218, end: 20031218
  10. REMICADE [Suspect]
     Indication: RHEUMATOID ARTHRITIS
     Dosage: 3 MG/KG/DAY INTRAVENOUS
     Route: 042
     Dates: start: 20040114, end: 20040114
  11. ONE-ALPHA (ALFACALCIDOL) [Concomitant]
  12. CYTOTEC [Concomitant]
  13. OMEPRAZOLE [Concomitant]
  14. TINELAC (SENNOSIDE A+B) [Concomitant]
  15. METHYCOBAL (MECOBALAMIN) [Concomitant]

REACTIONS (19)
  - ADRENAL INSUFFICIENCY [None]
  - ASPARTATE AMINOTRANSFERASE INCREASED [None]
  - BLOOD ALBUMIN DECREASED [None]
  - BLOOD ALKALINE PHOSPHATASE INCREASED [None]
  - BLOOD IRON DECREASED [None]
  - BLOOD LACTATE DEHYDROGENASE INCREASED [None]
  - CARDIAC ARREST [None]
  - DRUG INTERACTION [None]
  - ELECTROLYTE IMBALANCE [None]
  - HYPOKALAEMIA [None]
  - HYPONATRAEMIA [None]
  - INTERSTITIAL LUNG DISEASE [None]
  - METABOLIC ACIDOSIS [None]
  - NEUTROPHIL PERCENTAGE INCREASED [None]
  - PNEUMOCYSTIS CARINII PNEUMONIA [None]
  - PNEUMONIA CHLAMYDIAL [None]
  - PULMONARY MYCOSIS [None]
  - RESPIRATORY FAILURE [None]
  - SYSTEMIC INFLAMMATORY RESPONSE SYNDROME [None]
